FAERS Safety Report 7542155-6 (Version None)
Quarter: 2011Q2

REPORT INFORMATION
  Report Type: 
  Country: None (occurrence: None)
  Receive Date: 20110606
  Receipt Date: 20110520
  Transmission Date: 20111010
  Serious: Yes (Hospitalization)
  Sender: FDA-Public Use
  Company Number: NAP-11-07

PATIENT
  Age: 11 Year
  Sex: Male

DRUGS (2)
  1. NAPROXEN [Suspect]
     Indication: JUVENILE ARTHRITIS
     Dosage: 2/250MG DAILY
  2. SULFASALAZINE [Concomitant]

REACTIONS (7)
  - FACE OEDEMA [None]
  - RENAL TUBULAR DISORDER [None]
  - HYPONATRAEMIA [None]
  - HEPATITIS ACUTE [None]
  - COAGULOPATHY [None]
  - DRUG RASH WITH EOSINOPHILIA AND SYSTEMIC SYMPTOMS [None]
  - HEPATOSPLENOMEGALY [None]
